FAERS Safety Report 6970816-6 (Version None)
Quarter: 2010Q3

REPORT INFORMATION
  Report Type: 
  Country: None (occurrence: None)
  Receive Date: 20100908
  Receipt Date: 20100830
  Transmission Date: 20110219
  Serious: Yes (Other)
  Sender: FDA-Public Use
  Company Number: A0879676A

PATIENT
  Sex: Female

DRUGS (1)
  1. COREG [Suspect]
     Indication: PRODUCT USED FOR UNKNOWN INDICATION
     Dates: start: 20100825

REACTIONS (5)
  - CATARACT [None]
  - CATARACT OPERATION [None]
  - EAR OPERATION [None]
  - NEOPLASM [None]
  - VISION BLURRED [None]
